FAERS Safety Report 4916843-1 (Version None)
Quarter: 2006Q1

REPORT INFORMATION
  Report Type: 
  Country: None (occurrence: None)
  Receive Date: 20060216
  Receipt Date: 20060216
  Transmission Date: 20060701
  Serious: Yes (Life-Threatening, Hospitalization, Other)
  Sender: FDA-Public Use
  Company Number: None

PATIENT
  Sex: Female
  Weight: 72.5755 kg

DRUGS (1)
  1. ORTHO EVRA [Suspect]
     Indication: MENORRHAGIA
     Dosage: 1 PATCH 1 PATCH/WK TRANSDERMAL
     Route: 062
     Dates: start: 20030401, end: 20030701

REACTIONS (5)
  - CEREBRAL VENOUS THROMBOSIS [None]
  - CEREBROVASCULAR ACCIDENT [None]
  - HEADACHE [None]
  - MIGRAINE [None]
  - NAUSEA [None]
